FAERS Safety Report 9058593 (Version 2)
Quarter: 2013Q2

REPORT INFORMATION
  Report Type: Spontaneous
  Country: US (occurrence: US)
  Receive Date: 20130211
  Receipt Date: 20130614
  Transmission Date: 20140414
  Serious: Yes (Other)
  Sender: FDA-Public Use
  Company Number: US-009507513-1302USA001024

PATIENT
  Age: 28 Year
  Sex: Female

DRUGS (1)
  1. IMPLANON [Suspect]
     Indication: CONTRACEPTION
     Dosage: 68 MG PER 3 YEAR IMPLANT
     Route: 059
     Dates: start: 201001

REACTIONS (2)
  - Ectopic pregnancy termination [Recovered/Resolved]
  - Unintended pregnancy [Recovered/Resolved]
